FAERS Safety Report 24537834 (Version 1)
Quarter: 2024Q4

REPORT INFORMATION
  Report Type: Report from Study
  Country: US (occurrence: US)
  Receive Date: 20241023
  Receipt Date: 20241023
  Transmission Date: 20250114
  Serious: No
  Sender: BIOVITRUM
  Company Number: US-BIOVITRUM-2024-US-006289

PATIENT
  Age: 36 Year
  Sex: Male

DRUGS (1)
  1. VONJO [Suspect]
     Active Substance: PACRITINIB
     Indication: Myelofibrosis
     Dates: start: 2023

REACTIONS (3)
  - COVID-19 [Unknown]
  - Dysgeusia [Recovered/Resolved]
  - Intentional dose omission [Unknown]
